FAERS Safety Report 24959157 (Version 12)
Quarter: 2025Q4

REPORT INFORMATION
  Report Type: Report from Study
  Country: EU (occurrence: EU)
  Receive Date: 20250212
  Receipt Date: 20251024
  Transmission Date: 20260117
  Serious: Yes (Death, Other)
  Sender: BIOGEN
  Company Number: EU-BIOGEN-2025BI01300070

PATIENT
  Age: 56 Year
  Sex: Male
  Weight: 74 kg

DRUGS (3)
  1. TOFERSEN [Suspect]
     Active Substance: TOFERSEN
     Indication: Amyotrophic lateral sclerosis
     Dosage: DOSAGE TEXT:1 LOADING DOSE ON D0, D14 AND D28, THEN 1 MAINTENANCE DOSE EVERY 28 DAYS (100 MG, I.E., 15 ML) FOR EACH ADMINISTRATION
     Route: 037
     Dates: start: 20221116, end: 20250917
  2. RILUZOLE [Concomitant]
     Active Substance: RILUZOLE
     Indication: Product used for unknown indication
     Dates: start: 20220929
  3. HAWTHORN LEAF WITH FLOWER\QUININE [Concomitant]
     Active Substance: HAWTHORN LEAF WITH FLOWER\QUININE
     Indication: Product used for unknown indication

REACTIONS (11)
  - Pneumonia aspiration [Fatal]
  - CSF cell count abnormal [Unknown]
  - CSF protein increased [Not Recovered/Not Resolved]
  - Aphasia [Unknown]
  - CSF protein abnormal [Not Recovered/Not Resolved]
  - Respiratory failure [Unknown]
  - Dysphagia [Unknown]
  - Dysarthria [Unknown]
  - Facial paralysis [Unknown]
  - Meningitis aseptic [Unknown]
  - CSF white blood cell count increased [Not Recovered/Not Resolved]

NARRATIVE: CASE EVENT DATE: 20230816
